FAERS Safety Report 24015304 (Version 1)
Quarter: 2024Q2

REPORT INFORMATION
  Report Type: Spontaneous
  Country: US (occurrence: None)
  Receive Date: 20240626
  Receipt Date: 20240626
  Transmission Date: 20240715
  Serious: No
  Sender: FDA-Public Use
  Company Number: None

PATIENT
  Age: 42 Year
  Sex: Female
  Weight: 101.9 kg

DRUGS (2)
  1. CARBOPLATIN [Suspect]
     Active Substance: CARBOPLATIN
     Dates: end: 20240520
  2. PACLITAXEL [Suspect]
     Active Substance: PACLITAXEL
     Dates: end: 20240520

REACTIONS (5)
  - Crying [None]
  - Stress [None]
  - Alopecia [None]
  - Loss of employment [None]
  - Depression [None]

NARRATIVE: CASE EVENT DATE: 20240607
